FAERS Safety Report 5038126-4 (Version None)
Quarter: 2006Q2

REPORT INFORMATION
  Report Type: 
  Country: None (occurrence: None)
  Receive Date: 20060602
  Receipt Date: 20060214
  Transmission Date: 20061013
  Serious: Yes (Other)
  Sender: FDA-Public Use
  Company Number: 2006-0009237

PATIENT
  Age: 40 Year
  Sex: Female
  Weight: 56 kg

DRUGS (4)
  1. TRUVADA [Suspect]
     Indication: HIV INFECTION
     Dates: start: 20050501, end: 20060101
  2. VIRACEPT [Concomitant]
  3. EPZICOM [Concomitant]
  4. KEPPRA [Concomitant]

REACTIONS (1)
  - BLOOD CREATININE ABNORMAL [None]
